FAERS Safety Report 12178138 (Version 1)
Quarter: 2016Q1

REPORT INFORMATION
  Report Type: Spontaneous
  Country: US (occurrence: None)
  Receive Date: 20160314
  Receipt Date: 20160314
  Transmission Date: 20160526
  Serious: Yes (Other)
  Sender: FDA-Public Use
  Company Number: None

PATIENT
  Age: 5 Year
  Sex: Female
  Weight: 17.69 kg

DRUGS (1)
  1. TAMIFLU [Suspect]
     Active Substance: OSELTAMIVIR PHOSPHATE
     Indication: INFLUENZA
     Dosage: 1 TSP TWICE DAILY TAKEN BY MOUTH
     Route: 048
     Dates: start: 20160310, end: 20160311

REACTIONS (2)
  - Agitation [None]
  - Aggression [None]

NARRATIVE: CASE EVENT DATE: 20160311
